FAERS Safety Report 13450954 (Version 1)
Quarter: 2017Q2

REPORT INFORMATION
  Report Type: Spontaneous
  Country: US (occurrence: US)
  Receive Date: 20170418
  Receipt Date: 20170418
  Transmission Date: 20170830
  Serious: No
  Sender: FDA-Public Use
  Company Number: US-ELI_LILLY_AND_COMPANY-US201704004843

PATIENT
  Sex: Female

DRUGS (16)
  1. LYRICA [Concomitant]
     Active Substance: PREGABALIN
     Dosage: 150 MG, UNKNOWN
  2. FENOFIBRATE. [Concomitant]
     Active Substance: FENOFIBRATE
     Dosage: 160 MG, UNKNOWN
  3. LISINOPRIL. [Concomitant]
     Active Substance: LISINOPRIL
     Dosage: 20 MG, UNKNOWN
  4. HUMULIN R [Suspect]
     Active Substance: INSULIN HUMAN
     Dosage: 27 U, QD
     Route: 065
  5. TRESIBA [Concomitant]
     Active Substance: INSULIN DEGLUDEC
     Dosage: 90 U, UNKNOWN
  6. HYDROXYZINE [Concomitant]
     Active Substance: HYDROXYZINE HYDROCHLORIDE
     Dosage: 25 MG, UNKNOWN
  7. HUMULIN R [Suspect]
     Active Substance: INSULIN HUMAN
     Indication: TYPE 2 DIABETES MELLITUS
     Dosage: 67 U, QD
     Route: 065
  8. HUMULIN R [Suspect]
     Active Substance: INSULIN HUMAN
     Indication: INSULIN RESISTANCE
     Dosage: 55 U, QD
     Route: 065
  9. ONDANSETRON [Concomitant]
     Active Substance: ONDANSETRON
     Dosage: 4 MG, UNKNOWN
  10. OXCARBAZEPINE. [Concomitant]
     Active Substance: OXCARBAZEPINE
     Dosage: 150 MG, UNKNOWN
  11. PERCOCET                           /00446701/ [Concomitant]
     Active Substance: ACETAMINOPHEN\OXYCODONE HYDROCHLORIDE\OXYCODONE TEREPHTHALATE
  12. AMITIZA [Concomitant]
     Active Substance: LUBIPROSTONE
     Dosage: 24 UG, UNKNOWN
  13. DEXILANT [Concomitant]
     Active Substance: DEXLANSOPRAZOLE
     Dosage: 60 MG, UNKNOWN
  14. PROMETHAZINE [Concomitant]
     Active Substance: PROMETHAZINE\PROMETHAZINE HYDROCHLORIDE
     Dosage: 25 MG, UNKNOWN
  15. NOVOLOG [Concomitant]
     Active Substance: INSULIN ASPART
  16. ATORVASTATIN CALCIUM. [Concomitant]
     Active Substance: ATORVASTATIN CALCIUM
     Dosage: 40 MG, UNKNOWN

REACTIONS (3)
  - Urticaria [Recovered/Resolved]
  - Wrong technique in product usage process [Unknown]
  - Injection site pruritus [Recovered/Resolved]
